FAERS Safety Report 19073376 (Version 1)
Quarter: 2021Q1

REPORT INFORMATION
  Report Type: Spontaneous
  Country: US (occurrence: US)
  Receive Date: 20210329
  Receipt Date: 20210329
  Transmission Date: 20210420
  Serious: No
  Sender: FDA-Public Use
  Company Number: None

PATIENT

DRUGS (1)
  1. WIPE OUT ANTIBACTERIAL WIPES LEMON SCENT [Suspect]
     Active Substance: BENZALKONIUM CHLORIDE

REACTIONS (1)
  - Product use complaint [None]

NARRATIVE: CASE EVENT DATE: 20210322
